FAERS Safety Report 6140045-7 (Version None)
Quarter: 2009Q2

REPORT INFORMATION
  Report Type: 
  Country: None (occurrence: None)
  Receive Date: 20090401
  Receipt Date: 20090324
  Transmission Date: 20091009
  Serious: Yes (Other)
  Sender: FDA-Public Use
  Company Number: PHHY2009GR11108

PATIENT
  Age: 47 Year
  Sex: Female

DRUGS (3)
  1. ZOLEDRONIC ACID [Suspect]
     Dosage: 4 MG EVERY 3 WEEKS
  2. BEVACIZUMAB [Suspect]
     Dosage: UNK
     Dates: start: 20070501
  3. CHEMOTHERAPEUTICS NOS [Concomitant]

REACTIONS (4)
  - ABSCESS [None]
  - OSTEONECROSIS [None]
  - PAIN IN JAW [None]
  - PURULENT DISCHARGE [None]
